FAERS Safety Report 18478685 (Version 1)
Quarter: 2020Q4

REPORT INFORMATION
  Report Type: Spontaneous
  Country: IT (occurrence: IT)
  Receive Date: 20201109
  Receipt Date: 20201109
  Transmission Date: 20210114
  Serious: Yes (Hospitalization)
  Sender: FDA-Public Use
  Company Number: IT-TEVA-2020-IT-1845218

PATIENT
  Age: 90 Year
  Sex: Female
  Weight: 50 kg

DRUGS (6)
  1. POTASSION [Concomitant]
     Active Substance: POTASSIUM CHLORIDE
  2. KROVANEG [Concomitant]
  3. ALLOPURINOL. [Suspect]
     Active Substance: ALLOPURINOL
     Route: 048
  4. ACETYLSALICYLIC ACID [Concomitant]
     Active Substance: ASPIRIN
  5. TALOFEN [Concomitant]
     Active Substance: PROMAZINE HYDROCHLORIDE
  6. DELORAZEPAM [Concomitant]
     Active Substance: DELORAZEPAM

REACTIONS (2)
  - Acute kidney injury [Recovering/Resolving]
  - Hypersensitivity [Recovering/Resolving]

NARRATIVE: CASE EVENT DATE: 20200831
